FAERS Safety Report 5361860-3 (Version None)
Quarter: 2007Q2

REPORT INFORMATION
  Report Type: 
  Country: None (occurrence: None)
  Receive Date: 20070615
  Receipt Date: 20070531
  Transmission Date: 20071010
  Serious: Yes (Death)
  Sender: FDA-Public Use
  Company Number: T200700637

PATIENT
  Age: 73 Year
  Sex: Female

DRUGS (2)
  1. MD-GASTROVIEW [Suspect]
     Indication: COMPUTERISED TOMOGRAM ABDOMEN
     Dosage: SEE IMAGE
     Dates: start: 20070102, end: 20070102
  2. MD-GASTROVIEW [Suspect]
     Indication: COMPUTERISED TOMOGRAM ABDOMEN
     Dosage: SEE IMAGE
     Dates: start: 20070102

REACTIONS (2)
  - ASPIRATION [None]
  - SMALL INTESTINAL OBSTRUCTION [None]
